FAERS Safety Report 18408546 (Version 2)
Quarter: 2020Q4

REPORT INFORMATION
  Report Type: Spontaneous
  Country: US (occurrence: US)
  Receive Date: 20201021
  Receipt Date: 20201030
  Transmission Date: 20210114
  Serious: Yes (Hospitalization, Other)
  Sender: FDA-Public Use
  Company Number: US-NOVEN PHARMACEUTICALS, INC.-2020US006202

PATIENT
  Sex: Female
  Weight: 65.76 kg

DRUGS (4)
  1. COMBIPATCH [Suspect]
     Active Substance: ESTRADIOL\NORETHINDRONE ACETATE
     Indication: HOT FLUSH
     Dosage: 0.05/0.14 MG, CHANGED EVERY 3-4 DAYS
     Route: 062
  2. BENADRYL [Concomitant]
     Active Substance: DIPHENHYDRAMINE HYDROCHLORIDE
     Indication: HYPERSENSITIVITY
     Dosage: AT NIGHT BEFORE BED.
  3. COMBIPATCH [Suspect]
     Active Substance: ESTRADIOL\NORETHINDRONE ACETATE
     Indication: MENOPAUSE
  4. BENADRYL [Concomitant]
     Active Substance: DIPHENHYDRAMINE HYDROCHLORIDE
     Indication: INSOMNIA

REACTIONS (21)
  - Joint dislocation [Unknown]
  - Breast cyst [Not Recovered/Not Resolved]
  - Benign breast neoplasm [Not Recovered/Not Resolved]
  - Ligament sprain [Recovered/Resolved]
  - Loss of consciousness [Recovered/Resolved]
  - Gastrooesophageal reflux disease [Not Recovered/Not Resolved]
  - Breast enlargement [Not Recovered/Not Resolved]
  - Breast pain [Not Recovered/Not Resolved]
  - Spondylitis [Not Recovered/Not Resolved]
  - Accidental overdose [Recovered/Resolved]
  - Uterine prolapse [Recovered/Resolved]
  - Skin cancer [Recovered/Resolved]
  - Transient ischaemic attack [Recovered/Resolved]
  - Breast atrophy [Not Recovered/Not Resolved]
  - Hand fracture [Recovered/Resolved]
  - Fracture pain [Recovered/Resolved]
  - Biliary colic [Recovered/Resolved]
  - Transient ischaemic attack [Recovered/Resolved]
  - Arthritis [Unknown]
  - Intentional product use issue [Not Recovered/Not Resolved]
  - Off label use [Not Recovered/Not Resolved]

NARRATIVE: CASE EVENT DATE: 2011
